FAERS Safety Report 8366847-4 (Version None)
Quarter: 2012Q1

REPORT INFORMATION
  Report Type: 
  Country: None (occurrence: None)
  Receive Date: 20120323
  Receipt Date: 20110427
  Transmission Date: 20120608
  Serious: Yes (Hospitalization, Disabling)
  Sender: FDA-Public Use
  Company Number: 163-21880-11040680

PATIENT
  Age: 74 Year
  Sex: Male
  Weight: 86.637 kg

DRUGS (8)
  1. ALLOPURINOL [Concomitant]
  2. ARANESP [Concomitant]
  3. DEXAMETHASONE [Concomitant]
  4. AZITHROMYCIN [Concomitant]
  5. REVLIMID [Suspect]
     Indication: MULTIPLE MYELOMA
     Dosage: DAILY X 21, PO
     Route: 048
     Dates: start: 20110301
  6. METOPROLOL TARTRATE [Concomitant]
  7. DIOVAN [Concomitant]
  8. BLOOD (BLOOD AND RELATED PRODUCTS) [Concomitant]

REACTIONS (7)
  - ARTHRALGIA [None]
  - GAIT DISTURBANCE [None]
  - RASH MACULO-PAPULAR [None]
  - BONE PAIN [None]
  - WHITE BLOOD CELL COUNT DECREASED [None]
  - RASH ERYTHEMATOUS [None]
  - OEDEMA PERIPHERAL [None]
